FAERS Safety Report 8634169 (Version 3)
Quarter: 2012Q4

REPORT INFORMATION
  Report Type: 
  Country: US (occurrence: US)
  Receive Date: 20120626
  Receipt Date: 20120831
  Transmission Date: 20130627
  Serious: No
  Sender: FDA-Public Use
  Company Number: US-PFIZER INC-2012151070

PATIENT
  Age: 63 Year
  Sex: Female
  Weight: 59 kg

DRUGS (4)
  1. LYRICA [Suspect]
     Indication: TRIGEMINAL NEURALGIA
     Dosage: 50 mg, 4x/day (or 150 mg a day)
     Route: 048
     Dates: start: 20120507
  2. LYRICA [Suspect]
     Indication: PAIN IN JAW
  3. HUMIRA [Suspect]
     Indication: ARTHRITIS
     Dosage: 40 mg once every two week
  4. ZOLPIDEM TARTRATE [Concomitant]
     Indication: INSOMNIA
     Dosage: 10 mg, daily

REACTIONS (3)
  - Insomnia [Not Recovered/Not Resolved]
  - Toothache [Not Recovered/Not Resolved]
  - Fibromyalgia [Unknown]
